FAERS Safety Report 5596440-8 (Version None)
Quarter: 2008Q1

REPORT INFORMATION
  Report Type: 
  Country: None (occurrence: None)
  Receive Date: 20080118
  Receipt Date: 20080107
  Transmission Date: 20080703
  Serious: Yes (Other)
  Sender: FDA-Public Use
  Company Number: BR-PFIZER INC-2007067412

PATIENT
  Sex: Female
  Weight: 58 kg

DRUGS (2)
  1. EXUBERA [Suspect]
     Indication: DIABETES MELLITUS
     Dosage: DAILY DOSE:7MG
     Route: 055
  2. LANTUS [Concomitant]

REACTIONS (4)
  - DYSPNOEA [None]
  - HYPOGLYCAEMIA [None]
  - RESPIRATORY DISORDER [None]
  - TACHYPNOEA [None]
